FAERS Safety Report 11297997 (Version 1)
Quarter: 2015Q3

REPORT INFORMATION
  Report Type: Spontaneous
  Country: US (occurrence: US)
  Receive Date: 20150722
  Receipt Date: 20150722
  Transmission Date: 20151125
  Serious: Yes (Other)
  Sender: FDA-Public Use
  Company Number: US-ELI_LILLY_AND_COMPANY-US201012001543

PATIENT
  Age: 61 Year
  Sex: Male

DRUGS (8)
  1. ANDROGEL [Concomitant]
     Active Substance: TESTOSTERONE
     Dosage: 5 MG, ALTERNATING 1 AND 2 PACKS PER DAY
  2. DESMOPRESSIN [Concomitant]
     Active Substance: DESMOPRESSIN
     Dosage: 0.1 D/F, TAKES 1/2 IN A.M. AND 1 AT BEDTIME
  3. HUMATROPE [Suspect]
     Active Substance: SOMATROPIN
     Dosage: 6.5 DF, UNKNOWN
     Route: 065
  4. L-THYROXINE [Concomitant]
     Active Substance: LEVOTHYROXINE
     Dosage: 175 DF, UNK
  5. HUMATROPE [Suspect]
     Active Substance: SOMATROPIN
     Indication: HYPOPITUITARISM
     Dosage: 0.5 MG, DAILY (1/D)
     Dates: start: 20100608
  6. HUMATROPE [Suspect]
     Active Substance: SOMATROPIN
     Dosage: 5.5 DF, UNKNOWN
     Route: 065
     Dates: start: 20130312
  7. DEXAMETHASONE ACETATE [Concomitant]
     Active Substance: DEXAMETHASONE ACETATE
     Dosage: UNK, UNKNOWN
     Route: 065
  8. HYDROCORTISONE. [Concomitant]
     Active Substance: HYDROCORTISONE
     Dosage: 15 IN MORNING 5 IN THE AFTERNOON AND 5 IN THE EVENING, OTHER

REACTIONS (5)
  - Myalgia [Unknown]
  - Insulin-like growth factor decreased [Unknown]
  - Drug dose omission [Unknown]
  - Weight increased [Unknown]
  - Urinary retention [Unknown]

NARRATIVE: CASE EVENT DATE: 201007
